FAERS Safety Report 9325571 (Version 2)
Quarter: 2013Q3

REPORT INFORMATION
  Report Type: Report from Study
  Country: CL (occurrence: CL)
  Receive Date: 20130604
  Receipt Date: 20130711
  Transmission Date: 20140515
  Serious: Yes (Other)
  Sender: FDA-Public Use
  Company Number: PHHY2013CL055816

PATIENT
  Age: 59 Year
  Sex: Female

DRUGS (3)
  1. TAREG D [Suspect]
     Dosage: UNK (160/12.5MG), QD
  2. ASPIRIN [Concomitant]
     Dosage: UNK UKN, QD
  3. ATORVASTATIN [Concomitant]
     Indication: BLOOD CHOLESTEROL INCREASED
     Dosage: UNK UKN, UNK

REACTIONS (1)
  - Deafness [Recovering/Resolving]
